FAERS Safety Report 4353239-8 (Version None)
Quarter: 2004Q2

REPORT INFORMATION
  Report Type: 
  Country: None (occurrence: None)
  Receive Date: 20040430
  Receipt Date: 20040419
  Transmission Date: 20050107
  Serious: Yes (Other)
  Sender: FDA-Public Use
  Company Number: US-AMGEN-US073594

PATIENT

DRUGS (1)
  1. ENBREL [Suspect]

REACTIONS (1)
  - DEMYELINATION [None]
